FAERS Safety Report 19988520 (Version 6)
Quarter: 2022Q4

REPORT INFORMATION
  Report Type: Report from Study
  Country: CO (occurrence: CO)
  Receive Date: 20211023
  Receipt Date: 20221226
  Transmission Date: 20230113
  Serious: Yes (Hospitalization, Other)
  Sender: FDA-Public Use
  Company Number: CO-TAKEDA-2020TUS029422

PATIENT
  Age: 36 Year
  Sex: Male
  Weight: 78 kg

DRUGS (1)
  1. VEDOLIZUMAB [Suspect]
     Active Substance: VEDOLIZUMAB
     Indication: Crohn^s disease
     Dosage: 300 MILLIGRAM
     Route: 042
     Dates: start: 20200211

REACTIONS (18)
  - Intestinal obstruction [Recovering/Resolving]
  - Anal fistula [Unknown]
  - Diarrhoea [Recovering/Resolving]
  - Wound [Unknown]
  - Dyschezia [Not Recovered/Not Resolved]
  - Abdominal pain [Recovering/Resolving]
  - Pain [Recovering/Resolving]
  - Anorectal discomfort [Recovering/Resolving]
  - Gait disturbance [Recovering/Resolving]
  - Quality of life decreased [Recovering/Resolving]
  - Malaise [Recovering/Resolving]
  - Anaemia [Recovering/Resolving]
  - Computerised tomogram abdomen normal [Recovering/Resolving]
  - Infection [Not Recovered/Not Resolved]
  - Road traffic accident [Recovered/Resolved]
  - Multiple injuries [Recovered/Resolved]
  - Muscular weakness [Recovering/Resolving]
  - Fatigue [Recovering/Resolving]

NARRATIVE: CASE EVENT DATE: 20200701
